FAERS Safety Report 6667704-1 (Version None)
Quarter: 2010Q2

REPORT INFORMATION
  Report Type: 
  Country: None (occurrence: None)
  Receive Date: 20100405
  Receipt Date: 20100323
  Transmission Date: 20101027
  Serious: Yes (Hospitalization)
  Sender: FDA-Public Use
  Company Number: GB-CUBIST-2010S1000149

PATIENT
  Age: 84 Year
  Sex: Female

DRUGS (2)
  1. CUBICIN [Suspect]
     Route: 042
  2. AMOXICILLIN [Concomitant]

REACTIONS (2)
  - AORTIC DISORDER [None]
  - ENDOCARDITIS ENTEROCOCCAL [None]
